FAERS Safety Report 7591825-2 (Version None)
Quarter: 2011Q3

REPORT INFORMATION
  Report Type: 
  Country: None (occurrence: None)
  Receive Date: 20110706
  Receipt Date: 20110617
  Transmission Date: 20111222
  Serious: No
  Sender: FDA-Public Use
  Company Number: US-B.I. PHARMACEUTICALS,INC./RIDGEFIELD-2011-BP-15739BP

PATIENT
  Sex: Female

DRUGS (4)
  1. PRAVACHOL [Concomitant]
     Indication: BLOOD CHOLESTEROL INCREASED
  2. UNSPECIFIED HYPERTENSION MEDICATION [Concomitant]
     Indication: HYPERTENSION
  3. PRADAXA [Suspect]
     Indication: ATRIAL FIBRILLATION
     Route: 048
     Dates: start: 20110501
  4. TRAVATAN [Concomitant]
     Indication: GLAUCOMA
     Dates: start: 20070101

REACTIONS (1)
  - INTRAOCULAR PRESSURE DECREASED [None]
